FAERS Safety Report 22144091 (Version 1)
Quarter: 2023Q1

REPORT INFORMATION
  Report Type: Spontaneous
  Country: US (occurrence: US)
  Receive Date: 20230327
  Receipt Date: 20230327
  Transmission Date: 20230417
  Serious: Yes (Hospitalization)
  Sender: FDA-Public Use
  Company Number: US-drreddys-LIT/USA/23/0162702

PATIENT
  Age: 21 Year
  Sex: Female

DRUGS (2)
  1. COLCHICINE [Suspect]
     Active Substance: COLCHICINE
     Indication: Myopericarditis
  2. ASPIRIN [Suspect]
     Active Substance: ASPIRIN
     Indication: Myopericarditis
     Dosage: TAPER

REACTIONS (2)
  - Atrial flutter [Recovering/Resolving]
  - Drug ineffective for unapproved indication [Unknown]
